FAERS Safety Report 9349159 (Version 1)
Quarter: 2013Q2

REPORT INFORMATION
  Report Type: Spontaneous
  Country: US (occurrence: US)
  Receive Date: 20130614
  Receipt Date: 20130614
  Transmission Date: 20140414
  Serious: Yes (Hospitalization)
  Sender: FDA-Public Use
  Company Number: US-BAYER-2013-071646

PATIENT
  Age: 23 Year
  Sex: Female
  Weight: 90 kg

DRUGS (1)
  1. YASMIN [Suspect]

REACTIONS (2)
  - Portal vein thrombosis [Recovering/Resolving]
  - Mesenteric vein thrombosis [None]
